FAERS Safety Report 13040536 (Version 1)
Quarter: 2016Q4

REPORT INFORMATION
  Report Type: Spontaneous
  Country: US (occurrence: US)
  Receive Date: 20161219
  Receipt Date: 20161219
  Transmission Date: 20170207
  Serious: No
  Sender: FDA-Public Use
  Company Number: US-SA-2016SA046295

PATIENT
  Sex: Male

DRUGS (2)
  1. PLAVIX [Suspect]
     Active Substance: CLOPIDOGREL BISULFATE
     Route: 065
  2. ELIQUIS [Concomitant]
     Active Substance: APIXABAN

REACTIONS (5)
  - Body height decreased [Unknown]
  - Back injury [Unknown]
  - Herpes zoster [Unknown]
  - Back disorder [Unknown]
  - Intervertebral disc degeneration [Unknown]
